FAERS Safety Report 6057105-1 (Version None)
Quarter: 2009Q1

REPORT INFORMATION
  Report Type: 
  Country: None (occurrence: None)
  Receive Date: 20090126
  Receipt Date: 20090126
  Transmission Date: 20090719
  Serious: Yes (Other)
  Sender: FDA-Public Use
  Company Number: None

PATIENT
  Age: 45 Year
  Sex: Female
  Weight: 90.7194 kg

DRUGS (1)
  1. LEVAQUIN [Suspect]
     Indication: DIVERTICULITIS
     Dosage: 1 TABLET 2 X PER DAY PO
     Route: 048
     Dates: start: 20081230, end: 20090108

REACTIONS (6)
  - ARTHRALGIA [None]
  - ARTHROPATHY [None]
  - MALAISE [None]
  - MUSCULAR WEAKNESS [None]
  - PAIN [None]
  - ROTATOR CUFF SYNDROME [None]
